FAERS Safety Report 6719940-3 (Version None)
Quarter: 2010Q2

REPORT INFORMATION
  Report Type: 
  Country: None (occurrence: None)
  Receive Date: 20100506
  Receipt Date: 20100428
  Transmission Date: 20101027
  Serious: Yes (Life-Threatening, Hospitalization)
  Sender: FDA-Public Use
  Company Number: OMPQ-NO-1004S-0273

PATIENT
  Age: 52 Year
  Sex: Male

DRUGS (1)
  1. OMNIPAQUE 140 [Suspect]
     Indication: DRUG USE FOR UNKNOWN INDICATION
     Dosage: 100 ML, SINGLE DOSE, IV
     Route: 042
     Dates: start: 20100224, end: 20100224

REACTIONS (3)
  - DRUG ADMINISTRATION ERROR [None]
  - GENERAL PHYSICAL HEALTH DETERIORATION [None]
  - SKIN INJURY [None]
